FAERS Safety Report 18169773 (Version 5)
Quarter: 2022Q1

REPORT INFORMATION
  Report Type: Spontaneous
  Country: US (occurrence: US)
  Receive Date: 20200819
  Receipt Date: 20220106
  Transmission Date: 20220423
  Serious: No
  Sender: FDA-Public Use
  Company Number: US-PFIZER INC-2020304548

PATIENT
  Age: 10 Year
  Sex: Female
  Weight: 20.862 kg

DRUGS (1)
  1. GENOTROPIN [Suspect]
     Active Substance: SOMATROPIN
     Indication: Growth hormone deficiency
     Dosage: 1.2 MG, 1X/DAY (1.2MG ONCE DAILY INJECTION)
     Dates: start: 201908

REACTIONS (2)
  - Drug dose omission by device [Unknown]
  - Device breakage [Unknown]

NARRATIVE: CASE EVENT DATE: 20200801
